FAERS Safety Report 8995251 (Version 1)
Quarter: 2012Q4

REPORT INFORMATION
  Report Type: Spontaneous
  Country: US (occurrence: None)
  Receive Date: 20121221
  Receipt Date: 20121221
  Transmission Date: 20130627
  Serious: Yes (Other)
  Sender: FDA-Public Use
  Company Number: 2012P1066997

PATIENT
  Age: 81 Year
  Sex: Female

DRUGS (16)
  1. MORPHINE SULFATE INJECTION USP 5MG/ML VIAL (NO PREF. NAME) [Suspect]
     Route: 030
  2. NITROGLYCERIN (NO PREF. NAME) [Suspect]
     Indication: CHEST PAIN
     Route: 060
  3. SYNTHROID [Concomitant]
  4. SINEMET [Concomitant]
  5. NORVASC [Concomitant]
  6. ATENOLOL [Concomitant]
  7. ZOLOFT [Concomitant]
  8. NEXIUM [Concomitant]
  9. ASPIRIN [Concomitant]
  10. HYZAAR [Concomitant]
  11. VITAMIN D3 [Concomitant]
  12. VITAMIN B12 [Concomitant]
  13. VESIGCARE [Concomitant]
  14. COLACE [Concomitant]
  15. LOVASTATIN [Concomitant]
  16. PNEUMOVAX [Concomitant]

REACTIONS (3)
  - Confusional state [None]
  - Blood pressure decreased [None]
  - Drug hypersensitivity [None]
